FAERS Safety Report 8737729 (Version 2)
Quarter: 2013Q4

REPORT INFORMATION
  Report Type: Spontaneous
  Country: US (occurrence: US)
  Receive Date: 20120822
  Receipt Date: 20131101
  Transmission Date: 20140711
  Serious: No
  Sender: FDA-Public Use
  Company Number: US-009507513-1207USA011098

PATIENT
  Sex: Female

DRUGS (2)
  1. MIRALAX [Suspect]
     Indication: CONSTIPATION
     Dosage: 17 G, QD
     Route: 048
     Dates: start: 2012
  2. MIRALAX [Suspect]
     Indication: MEDICAL OBSERVATION
     Dosage: 34 G, QD
     Route: 048
     Dates: start: 201206

REACTIONS (3)
  - Drug ineffective [Unknown]
  - Incorrect drug administration duration [Unknown]
  - Prescribed overdose [Unknown]
